FAERS Safety Report 16883012 (Version 6)
Quarter: 2021Q1

REPORT INFORMATION
  Report Type: Report from Study
  Country: FR (occurrence: FR)
  Receive Date: 20191004
  Receipt Date: 20210218
  Transmission Date: 20210419
  Serious: Yes (Hospitalization, Other)
  Sender: FDA-Public Use
  Company Number: FR-PFIZER INC-2019418546

PATIENT
  Age: 45 Year
  Sex: Male
  Weight: 111 kg

DRUGS (46)
  1. SOLU?MEDROL [Suspect]
     Active Substance: METHYLPREDNISOLONE SODIUM SUCCINATE
     Indication: TRANSPLANT REJECTION
     Dosage: 500 MG, UNK
     Dates: start: 20190309, end: 20190309
  2. ADOPORT [Suspect]
     Active Substance: TACROLIMUS
     Dosage: 16 MG, UNK
     Route: 048
     Dates: start: 20190309, end: 20190311
  3. ADOPORT [Suspect]
     Active Substance: TACROLIMUS
     Dosage: 3 MG, UNK
     Route: 048
     Dates: start: 20190309
  4. ADOPORT [Suspect]
     Active Substance: TACROLIMUS
     Dosage: 2 MG, UNK
     Dates: start: 20200110
  5. SOLU?MEDROL [Suspect]
     Active Substance: METHYLPREDNISOLONE SODIUM SUCCINATE
     Dosage: 120 MG, UNK
     Dates: start: 20190310, end: 20190310
  6. ADOPORT [Suspect]
     Active Substance: TACROLIMUS
     Indication: RENAL TRANSPLANT
     Dosage: 2 MG, UNK
     Route: 048
     Dates: start: 20190507
  7. ADOPORT [Suspect]
     Active Substance: TACROLIMUS
     Dosage: 8 MG, UNK
     Route: 048
     Dates: start: 20190311, end: 20190312
  8. MYFORTIC [Concomitant]
     Active Substance: MYCOPHENOLATE SODIUM
     Dosage: UNK
     Dates: start: 20190309
  9. SIMULECT [Concomitant]
     Active Substance: BASILIXIMAB
     Dosage: UNK
     Dates: start: 20190309, end: 20190309
  10. FUROSEMIDE. [Concomitant]
     Active Substance: FUROSEMIDE
     Dosage: UNK
     Dates: start: 20190310, end: 20190312
  11. ADOPORT [Suspect]
     Active Substance: TACROLIMUS
     Dosage: 10 MG, UNK
     Route: 048
     Dates: start: 20190313, end: 20190321
  12. ADOPORT [Suspect]
     Active Substance: TACROLIMUS
     Dosage: 4 UNK
     Dates: start: 20200601
  13. DUPHALAC [Concomitant]
     Active Substance: LACTULOSE
     Dosage: UNK
     Dates: start: 20190310, end: 20190315
  14. ADOPORT [Suspect]
     Active Substance: TACROLIMUS
     Dosage: 4 MG, UNK
     Route: 048
     Dates: start: 20190322, end: 20190326
  15. ONDANSETRON [Concomitant]
     Active Substance: ONDANSETRON
     Dosage: UNK
     Dates: start: 20190309, end: 20190310
  16. CORTANCYL [Concomitant]
     Active Substance: PREDNISONE
     Dosage: UNK
     Dates: start: 20190328
  17. AMLOR [Concomitant]
     Active Substance: AMLODIPINE BESYLATE
     Dosage: UNK
     Dates: start: 20190312
  18. ARANESP [Concomitant]
     Active Substance: DARBEPOETIN ALFA
     Dosage: UNK
     Dates: start: 20190310
  19. SOLU?MEDROL [Suspect]
     Active Substance: METHYLPREDNISOLONE SODIUM SUCCINATE
     Dosage: UNK
     Dates: start: 20190325, end: 20190327
  20. ADOPORT [Suspect]
     Active Substance: TACROLIMUS
     Dosage: 16 MG, UNK
     Route: 048
     Dates: start: 20190309
  21. ADOPORT [Suspect]
     Active Substance: TACROLIMUS
     Dosage: 2.5 MG, UNK
     Route: 048
     Dates: start: 20190326, end: 20190331
  22. ADOPORT [Suspect]
     Active Substance: TACROLIMUS
     Dosage: 3 MG, UNK
     Route: 048
     Dates: start: 20190331, end: 20190403
  23. ADOPORT [Suspect]
     Active Substance: TACROLIMUS
     Dosage: 4 MG, UNK
     Dates: start: 20190309
  24. CORTANCYL [Concomitant]
     Active Substance: PREDNISONE
     Dosage: UNK
     Dates: start: 20190311, end: 20190314
  25. KAYEXALATE [Concomitant]
     Active Substance: SODIUM POLYSTYRENE SULFONATE
     Dosage: UNK
     Dates: start: 20190310, end: 20190310
  26. SOLU?MEDROL [Suspect]
     Active Substance: METHYLPREDNISOLONE SODIUM SUCCINATE
     Dosage: UNK
     Dates: start: 20190405, end: 20190405
  27. ADOPORT [Suspect]
     Active Substance: TACROLIMUS
     Dosage: 2 MG, 1X/DAY
     Route: 048
  28. ADOPORT [Suspect]
     Active Substance: TACROLIMUS
     Dosage: 4 MG, UNK
     Route: 048
     Dates: start: 20190403
  29. ADOPORT [Suspect]
     Active Substance: TACROLIMUS
     Dosage: 3 MG, UNK
     Route: 048
     Dates: start: 20190503, end: 20190507
  30. ADOPORT [Suspect]
     Active Substance: TACROLIMUS
     Dosage: 7 MG, UNK
     Route: 048
     Dates: start: 20190321, end: 20190322
  31. PARACETAMOL [Concomitant]
     Active Substance: ACETAMINOPHEN
     Dosage: UNK
     Dates: start: 20190309, end: 20190316
  32. ACUPAN [Concomitant]
     Active Substance: NEFOPAM HYDROCHLORIDE
     Dosage: UNK
     Dates: start: 20190311, end: 20190313
  33. PHLOROGLUCINOL [Concomitant]
     Active Substance: PHLOROGLUCINOL
     Dosage: UNK
     Dates: start: 20190309, end: 20190313
  34. CALCIPARINE [Concomitant]
     Active Substance: HEPARIN CALCIUM
     Dosage: UNK
     Dates: start: 20190310, end: 20190320
  35. FOLIC ACID. [Concomitant]
     Active Substance: FOLIC ACID
     Dosage: UNK
     Dates: start: 20190310
  36. PRAVASTATIN. [Concomitant]
     Active Substance: PRAVASTATIN
     Dosage: UNK
     Dates: start: 20190309
  37. TRAMADOL. [Concomitant]
     Active Substance: TRAMADOL
     Dosage: UNK
     Dates: start: 20190309, end: 20190313
  38. THYMOGLOBULINE [Concomitant]
     Active Substance: LAPINE T-LYMPHOCYTE IMMUNE GLOBULIN
     Dosage: UNK
     Dates: start: 20190324, end: 20190329
  39. SIMULECT [Concomitant]
     Active Substance: BASILIXIMAB
     Dosage: UNK
     Dates: start: 20190313, end: 20190313
  40. ADOPORT [Suspect]
     Active Substance: TACROLIMUS
     Dosage: 5 MG, UNK
     Route: 048
     Dates: start: 20190312, end: 20190313
  41. ADOPORT [Suspect]
     Active Substance: TACROLIMUS
     Dosage: 2 MG, UNK
     Route: 048
     Dates: start: 20190309
  42. LANSOPRAZOLE. [Concomitant]
     Active Substance: LANSOPRAZOLE
     Dosage: UNK
     Dates: start: 20190309
  43. BACTRIM [Concomitant]
     Active Substance: SULFAMETHOXAZOLE\TRIMETHOPRIM
     Dosage: UNK
     Dates: start: 20190316
  44. VALGANCICLOVIR. [Concomitant]
     Active Substance: VALGANCICLOVIR
     Dosage: UNK
     Dates: start: 20190311
  45. SODIUM BICARBONATE. [Concomitant]
     Active Substance: SODIUM BICARBONATE
     Dosage: UNK
     Dates: start: 20190312
  46. OXYBUTYNINE [OXYBUTYNIN HYDROCHLORIDE] [Concomitant]
     Dosage: UNK
     Dates: start: 20190309, end: 20190310

REACTIONS (12)
  - Transplant rejection [Recovered/Resolved]
  - Hypomagnesaemia [Not Recovered/Not Resolved]
  - Orthostatic hypotension [Recovered/Resolved]
  - Hyperglycaemia [Recovered/Resolved]
  - Diarrhoea [Recovered/Resolved]
  - Oedema peripheral [Recovered/Resolved]
  - Hypokalaemia [Recovered/Resolved]
  - Fluid overload [Recovered/Resolved]
  - Subcutaneous abscess [Recovered/Resolved]
  - Hyperleukocytosis [Recovered/Resolved]
  - Bladder spasm [Recovered/Resolved]
  - Hypophosphataemia [Recovered/Resolved]

NARRATIVE: CASE EVENT DATE: 20190309
